FAERS Safety Report 10410886 (Version 1)
Quarter: 2014Q3

REPORT INFORMATION
  Report Type: Spontaneous
  Country: FR (occurrence: FR)
  Receive Date: 20140826
  Receipt Date: 20140826
  Transmission Date: 20150326
  Serious: Yes (Other)
  Sender: FDA-Public Use
  Company Number: FR-BAXTER-2014BAX050880

PATIENT
  Age: 65 Year
  Sex: Male

DRUGS (8)
  1. ENDOXAN 1000 MG, POUDRE POUR SOLUTION INJECTABLE [Suspect]
     Active Substance: CYCLOPHOSPHAMIDE
     Indication: ANTI-GAD ANTIBODY POSITIVE
  2. RITUXIMAB [Suspect]
     Active Substance: RITUXIMAB
     Indication: ANTI-GAD ANTIBODY POSITIVE
  3. ENDOXAN 1000 MG, POUDRE POUR SOLUTION INJECTABLE [Suspect]
     Active Substance: CYCLOPHOSPHAMIDE
     Indication: CEREBELLAR ATAXIA
     Dosage: SIX BOLUSIS ON DAYS 1, 14, 28, 49, 70, 91
     Route: 065
  4. KIOVIG [Suspect]
     Active Substance: HUMAN IMMUNOGLOBULIN G
     Indication: CEREBELLAR ATAXIA
     Dosage: 2 G/KG FROM DAYS 2 TO 5
     Route: 042
  5. RITUXIMAB [Suspect]
     Active Substance: RITUXIMAB
     Indication: CEREBELLAR ATAXIA
     Dosage: FOUR TIMES, SPACED ONE WEEK APART
     Route: 065
  6. KIOVIG [Suspect]
     Active Substance: HUMAN IMMUNOGLOBULIN G
     Indication: DRUG INEFFECTIVE
  7. KIOVIG [Suspect]
     Active Substance: HUMAN IMMUNOGLOBULIN G
     Indication: OFF LABEL USE
  8. KIOVIG [Suspect]
     Active Substance: HUMAN IMMUNOGLOBULIN G
     Indication: ANTI-GAD ANTIBODY POSITIVE

REACTIONS (1)
  - Drug ineffective [Recovered/Resolved]
